FAERS Safety Report 21338750 (Version 1)
Quarter: 2022Q3

REPORT INFORMATION
  Report Type: Spontaneous
  Country: JP (occurrence: JP)
  Receive Date: 20220915
  Receipt Date: 20220915
  Transmission Date: 20221027
  Serious: Yes (Other)
  Sender: FDA-Public Use
  Company Number: JP-MSD-M2022-38970

PATIENT
  Age: 91 Year
  Sex: Female

DRUGS (1)
  1. BELSOMRA [Suspect]
     Active Substance: SUVOREXANT
     Indication: Insomnia
     Dosage: 10 MILLIGRAM, PRN
     Route: 048
     Dates: start: 202207

REACTIONS (4)
  - Pemphigoid [Unknown]
  - Blister [Unknown]
  - Pruritus [Unknown]
  - Underdose [Unknown]

NARRATIVE: CASE EVENT DATE: 20220101
